FAERS Safety Report 9863078 (Version 1)
Quarter: 2014Q1

REPORT INFORMATION
  Report Type: Spontaneous
  Country: US (occurrence: US)
  Receive Date: 20140203
  Receipt Date: 20140203
  Transmission Date: 20141002
  Serious: Yes (Other)
  Sender: FDA-Public Use
  Company Number: US-BAYER-2014-014757

PATIENT
  Age: 24 Year
  Sex: Female

DRUGS (1)
  1. SKYLA [Suspect]
     Indication: ENDOMETRIOSIS
     Dosage: 14 MCG/24HR, CONT
     Route: 015
     Dates: start: 20131217

REACTIONS (6)
  - Post procedural haemorrhage [Not Recovered/Not Resolved]
  - Off label use [None]
  - Procedural pain [None]
  - Procedural pain [Not Recovered/Not Resolved]
  - Dysmenorrhoea [None]
  - Polymenorrhoea [None]
